FAERS Safety Report 8179914-5 (Version None)
Quarter: 2012Q1

REPORT INFORMATION
  Report Type: 
  Country: None (occurrence: None)
  Receive Date: 20120302
  Receipt Date: 20120229
  Transmission Date: 20120608
  Serious: No
  Sender: FDA-Public Use
  Company Number: US-PFIZER INC-2012055692

PATIENT
  Sex: Female

DRUGS (1)
  1. CHILDREN'S ADVIL [Suspect]
     Indication: PROCEDURAL PAIN
     Dosage: ONE AND A HALF TEASPOON
     Route: 048
     Dates: start: 20120229

REACTIONS (3)
  - OCULAR HYPERAEMIA [None]
  - SWELLING FACE [None]
  - EYE OEDEMA [None]
